FAERS Safety Report 6766277-2 (Version None)
Quarter: 2010Q2

REPORT INFORMATION
  Report Type: 
  Country: None (occurrence: None)
  Receive Date: 20100611
  Receipt Date: 20100603
  Transmission Date: 20101027
  Serious: Yes (Other)
  Sender: FDA-Public Use
  Company Number: JP-PFIZER INC-2010043173

PATIENT
  Age: 83 Year
  Sex: Female

DRUGS (5)
  1. DOXAZOSIN MESYLATE [Suspect]
     Indication: HYPERTENSION
     Dosage: 1 MG, DAILY
     Route: 048
     Dates: start: 20100325, end: 20100326
  2. AMLODIN [Suspect]
     Dosage: UNK
     Route: 048
     Dates: start: 20100325
  3. LOSARTAN POTASSIUM AND HYDROCHLOROTHIAZIDE [Suspect]
     Dosage: IN THE MORNING
     Route: 048
     Dates: start: 20100325
  4. DEPAS [Suspect]
     Dosage: AFTER DINNER
     Route: 048
     Dates: start: 20100325
  5. PLAVIX [Suspect]
     Dosage: 75 MG, UNK
     Route: 048
     Dates: start: 20100325

REACTIONS (1)
  - TREMOR [None]
